FAERS Safety Report 20201068 (Version 4)
Quarter: 2022Q1

REPORT INFORMATION
  Report Type: Spontaneous
  Country: IT (occurrence: IT)
  Receive Date: 20211217
  Receipt Date: 20220221
  Transmission Date: 20220423
  Serious: Yes (Hospitalization)
  Sender: FDA-Public Use
  Company Number: IT-BIOGEN-2021BI01077682

PATIENT
  Age: 52 Year
  Sex: Male

DRUGS (2)
  1. TYSABRI [Suspect]
     Active Substance: NATALIZUMAB
     Indication: Multiple sclerosis
     Dosage: 78 ADMINISTRATIONS
     Route: 065
     Dates: start: 201307
  2. TYSABRI [Suspect]
     Active Substance: NATALIZUMAB
     Dosage: ABOUT 38/42 DAYS
     Route: 065

REACTIONS (2)
  - Myxoid liposarcoma [Recovered/Resolved]
  - Prescribed underdose [Unknown]

NARRATIVE: CASE EVENT DATE: 20151206
